FAERS Safety Report 18542680 (Version 1)
Quarter: 2020Q4

REPORT INFORMATION
  Report Type: Spontaneous
  Country: FR (occurrence: FR)
  Receive Date: 20201124
  Receipt Date: 20201124
  Transmission Date: 20210114
  Serious: Yes (Other)
  Sender: FDA-Public Use
  Company Number: FR-MYLANLABS-2020M1096452

PATIENT
  Age: 43 Year
  Sex: Male
  Weight: 88 kg

DRUGS (1)
  1. PROPIONATE DE FLUTICASONE / SALMETEROL MYLAN [Suspect]
     Active Substance: FLUTICASONE PROPIONATE\SALMETEROL XINAFOATE
     Indication: ASTHMA
     Dosage: 2 DOSAGE FORM, QD
     Route: 055
     Dates: start: 20200801, end: 20200901

REACTIONS (3)
  - Pruritus [Recovered/Resolved]
  - Product substitution issue [Recovered/Resolved]
  - Erythema [Recovered/Resolved]

NARRATIVE: CASE EVENT DATE: 20200805
